FAERS Safety Report 5759146-8 (Version None)
Quarter: 2008Q2

REPORT INFORMATION
  Report Type: 
  Country: None (occurrence: None)
  Receive Date: 20080604
  Receipt Date: 20080508
  Transmission Date: 20081010
  Serious: No
  Sender: FDA-Public Use
  Company Number: US-BOEHRINGER INGELHEIM GMBH, GERMANY-2008-BP-03437BP

PATIENT
  Age: 77 Year
  Sex: Female
  Weight: 73 kg

DRUGS (15)
  1. AGGRENOX [Suspect]
     Indication: CEREBROVASCULAR ACCIDENT
     Dates: end: 20080305
  2. KLONOPIN [Concomitant]
  3. COSOPT [Concomitant]
  4. COQ10 [Concomitant]
  5. VITAMIN B [Concomitant]
  6. OMEGA 3 [Concomitant]
  7. LEXAPRO [Concomitant]
  8. INSULIN [Concomitant]
  9. ZOCOR [Concomitant]
  10. DIOVAN [Concomitant]
  11. ALLEGRA [Concomitant]
  12. TENORMIN [Concomitant]
  13. HYDROCHLOROTHIAZIDE [Concomitant]
  14. ASPIRIN [Concomitant]
  15. MAEXPRITIE [Concomitant]

REACTIONS (4)
  - DIARRHOEA [None]
  - FLUSHING [None]
  - MASTOCYTOSIS [None]
  - VOMITING [None]
